FAERS Safety Report 15747374 (Version 1)
Quarter: 2018Q4

REPORT INFORMATION
  Report Type: Report from Study
  Country: US (occurrence: US)
  Receive Date: 20181220
  Receipt Date: 20181220
  Transmission Date: 20190205
  Serious: Yes (Hospitalization)
  Sender: FDA-Public Use
  Company Number: US-EXELIXIS-CABO-18017737

PATIENT
  Sex: Female

DRUGS (5)
  1. CENTRUM [Concomitant]
     Active Substance: VITAMINS
     Dosage: UNK
  2. VITAMIN E [Concomitant]
     Active Substance: .ALPHA.-TOCOPHEROL
     Dosage: UNK
  3. LEVOTHYROXINE. [Concomitant]
     Active Substance: LEVOTHYROXINE
     Dosage: UNK
  4. VITAMIN D3 [Concomitant]
     Active Substance: CHOLECALCIFEROL
     Dosage: UNK
  5. COMETRIQ [Suspect]
     Active Substance: CABOZANTINIB S-MALATE
     Indication: THYROID CANCER
     Dosage: 140 MG, QD
     Route: 048
     Dates: start: 20180726

REACTIONS (5)
  - Malaise [Unknown]
  - Muscle spasms [Unknown]
  - Back pain [Unknown]
  - Nausea [Unknown]
  - Feeling hot [Unknown]

NARRATIVE: CASE EVENT DATE: 2018
